FAERS Safety Report 25097877 (Version 1)
Quarter: 2025Q1

REPORT INFORMATION
  Report Type: Spontaneous
  Country: US (occurrence: US)
  Receive Date: 20250320
  Receipt Date: 20250320
  Transmission Date: 20250409
  Serious: Yes (Life-Threatening, Hospitalization, Other)
  Sender: ALKEM
  Company Number: US-ALKEM LABORATORIES LIMITED-US-ALKEM-2025-02547

PATIENT
  Age: 78 Year
  Sex: Male
  Weight: 68 kg

DRUGS (6)
  1. CAPECITABINE [Suspect]
     Active Substance: CAPECITABINE
     Indication: Metastases to liver
     Dosage: 850 MILLIGRAM/SQ. METER, BID (TWICE DAILY) (2000 MG IN THE MORNING AND 1500 MG IN THE EVENING)
     Route: 048
  2. CLOPIDOGREL [Concomitant]
     Active Substance: CLOPIDOGREL BISULFATE
     Indication: Product used for unknown indication
     Dosage: 75 MILLIGRAM, QD (DAILY)
     Route: 065
  3. CLOTRIMAZOLE [Concomitant]
     Active Substance: CLOTRIMAZOLE
     Indication: Product used for unknown indication
     Route: 065
  4. MEMANTINE [Concomitant]
     Active Substance: MEMANTINE
     Indication: Product used for unknown indication
     Dosage: 10 MILLIGRAM, QD (DAILY)
     Route: 065
  5. DEVICE\YTTRIUM Y-90 [Concomitant]
     Active Substance: DEVICE\YTTRIUM Y-90
     Indication: Metastases to liver
     Route: 013
  6. TIMOLOL [Concomitant]
     Active Substance: TIMOLOL
     Indication: Product used for unknown indication
     Route: 065

REACTIONS (10)
  - Delirium [Unknown]
  - Dementia [Unknown]
  - Toxicity to various agents [Unknown]
  - Oral pain [Unknown]
  - Bacteraemia [Unknown]
  - Myelosuppression [Unknown]
  - Mucosal inflammation [Unknown]
  - Dermatitis [Unknown]
  - Diarrhoea [Unknown]
  - Dysphagia [Unknown]
